FAERS Safety Report 17539081 (Version 1)
Quarter: 2020Q1

REPORT INFORMATION
  Report Type: Spontaneous
  Country: US (occurrence: US)
  Receive Date: 20200312
  Receipt Date: 20200312
  Transmission Date: 20200409
  Serious: Yes (Other)
  Sender: FDA-Public Use
  Company Number: None

PATIENT
  Age: 68 Year
  Sex: Female
  Weight: 62.14 kg

DRUGS (8)
  1. PROCHLORPERAZINE. [Concomitant]
     Active Substance: PROCHLORPERAZINE
  2. ACETAMINOPHEN. [Concomitant]
     Active Substance: ACETAMINOPHEN
  3. VITAMIN D3 [Concomitant]
     Active Substance: CHOLECALCIFEROL
  4. MULTIVITAMIN [Concomitant]
     Active Substance: VITAMINS
  5. MYLANTA [Concomitant]
     Active Substance: ALUMINUM HYDROXIDE\DIMETHICONE\MAGNESIUM HYDROXIDE
  6. IBRANCE [Suspect]
     Active Substance: PALBOCICLIB
     Route: 048
  7. CLARITIN [Concomitant]
     Active Substance: LORATADINE
  8. HYZAAR [Concomitant]
     Active Substance: HYDROCHLOROTHIAZIDE\LOSARTAN POTASSIUM

REACTIONS (3)
  - Influenza like illness [None]
  - Dysgeusia [None]
  - Urine output increased [None]

NARRATIVE: CASE EVENT DATE: 20200312
